FAERS Safety Report 23221682 (Version 1)
Quarter: 2023Q4

REPORT INFORMATION
  Report Type: Spontaneous
  Country: US (occurrence: US)
  Receive Date: 20231123
  Receipt Date: 20231123
  Transmission Date: 20240110
  Serious: No
  Sender: FDA-Public Use
  Company Number: US-STRIDES ARCOLAB LIMITED-2023SP014188

PATIENT
  Sex: Male
  Weight: 65.76 kg

DRUGS (2)
  1. IBUPROFEN [Suspect]
     Active Substance: IBUPROFEN
     Indication: Pain
     Dosage: 1 TABLETS, EVERY 6 HRS (THREE TIMES A DAY))
     Route: 048
     Dates: start: 20230905, end: 20230906
  2. AMOXICILLIN [Concomitant]
     Active Substance: AMOXICILLIN
     Indication: Infection prophylaxis
     Dosage: UNK, QID
     Route: 048

REACTIONS (2)
  - Poor quality sleep [Not Recovered/Not Resolved]
  - Adverse drug reaction [Not Recovered/Not Resolved]
